FAERS Safety Report 22884149 (Version 4)
Quarter: 2023Q4

REPORT INFORMATION
  Report Type: Report from Study
  Country: GB (occurrence: GB)
  Receive Date: 20230830
  Receipt Date: 20231227
  Transmission Date: 20240110
  Serious: Yes (Hospitalization)
  Sender: FDA-Public Use
  Company Number: GB-SA-SAC20230425001013

PATIENT
  Age: 65 Year
  Weight: 86.4 kg

DRUGS (8)
  1. DEXAMETHASONE [Suspect]
     Active Substance: DEXAMETHASONE
     Indication: Plasma cell myeloma refractory
     Dosage: 20 MG, QD
     Route: 065
     Dates: start: 20230413
  2. GABAPENTIN [Concomitant]
     Active Substance: GABAPENTIN
     Indication: Product used for unknown indication
     Dosage: 400 MG, TID, DURATION : 14 DAYS
     Route: 048
     Dates: start: 20230426, end: 20230510
  3. FILGRASTIM [Concomitant]
     Active Substance: FILGRASTIM
     Indication: Prophylaxis
     Dosage: TIME INTERVAL: CYCLICAL: 480 MCG, QCY; DURATION :7 DAYS
     Route: 058
     Dates: start: 20230426, end: 20230503
  4. OCTENIDINE HYDROCHLORIDE [Concomitant]
     Active Substance: OCTENIDINE HYDROCHLORIDE
     Indication: Prophylaxis
     Dosage: TIME INTERVAL: AS NECESSARY: UNK UNK, PRN
     Route: 061
     Dates: start: 20230426
  5. ISATUXIMAB [Suspect]
     Active Substance: ISATUXIMAB
     Indication: Plasma cell myeloma refractory
     Dosage: 900 MG, QW
     Route: 065
     Dates: start: 20230413
  6. POMALIDOMIDE [Suspect]
     Active Substance: POMALIDOMIDE
     Indication: Plasma cell myeloma refractory
     Dosage: 3 MG, QD
     Route: 065
     Dates: start: 20230413
  7. RIVAROXABAN [Concomitant]
     Active Substance: RIVAROXABAN
     Dosage: 10 MG, QD
     Dates: start: 20230413, end: 20230511
  8. ACYCLOVIR [Concomitant]
     Active Substance: ACYCLOVIR
     Indication: Prophylaxis
     Dosage: 200 MG, TID
     Route: 048
     Dates: start: 20230426

REACTIONS (7)
  - Lower respiratory tract infection [Recovered/Resolved]
  - Neutrophil count decreased [Recovered/Resolved]
  - Pain [Not Recovered/Not Resolved]
  - Pain [Recovered/Resolved with Sequelae]
  - Diarrhoea [Recovered/Resolved]
  - Neutrophil count decreased [Recovered/Resolved]
  - Neutrophil count decreased [Recovered/Resolved]

NARRATIVE: CASE EVENT DATE: 20230417
